FAERS Safety Report 7198353-7 (Version None)
Quarter: 2010Q4

REPORT INFORMATION
  Report Type: 
  Country: None (occurrence: None)
  Receive Date: 20101227
  Receipt Date: 20101217
  Transmission Date: 20110411
  Serious: No
  Sender: FDA-Public Use
  Company Number: KR-JNJFOC-20101002315

PATIENT
  Age: 54 Year
  Sex: Female

DRUGS (3)
  1. DURAGESIC-100 [Suspect]
     Indication: PAIN MANAGEMENT
     Route: 062
  2. DURAGESIC-100 [Suspect]
     Route: 062
  3. UNKNOWN MEDICATION [Concomitant]
     Indication: GASTROINTESTINAL DISORDER
     Route: 065

REACTIONS (3)
  - ABDOMINAL DISCOMFORT [None]
  - DRUG ADMINISTRATION ERROR [None]
  - NAUSEA [None]
